FAERS Safety Report 26102831 (Version 1)
Quarter: 2025Q4

REPORT INFORMATION
  Report Type: Spontaneous
  Country: CA (occurrence: CA)
  Receive Date: 20251128
  Receipt Date: 20251128
  Transmission Date: 20260117
  Serious: Yes (Other)
  Sender: TEVA
  Company Number: CA-TEVA-VS-3396798

PATIENT
  Age: 50 Year
  Sex: Female

DRUGS (11)
  1. CYCLOSPORINE [Suspect]
     Active Substance: CYCLOSPORINE
     Indication: Anogenital lichen planus
     Route: 065
  2. CYCLOSPORINE [Suspect]
     Active Substance: CYCLOSPORINE
     Indication: Anogenital lichen planus
     Dosage: DOSE FORM : NOT SPECIFIED
     Route: 065
  3. MYCOPHENOLATE MOFETIL [Suspect]
     Active Substance: MYCOPHENOLATE MOFETIL
     Indication: Lichen planus
     Route: 065
  4. APREMILAST [Suspect]
     Active Substance: APREMILAST
     Indication: Lichen planus
     Route: 048
  5. ACITRETIN [Suspect]
     Active Substance: ACITRETIN
     Indication: Lichen planus
     Dosage: DOSE FORM: NOT SPECIFIED
     Route: 048
  6. ABROCITINIB [Concomitant]
     Active Substance: ABROCITINIB
     Indication: Anogenital lichen planus
     Route: 048
  7. APREMILAST [Concomitant]
     Active Substance: APREMILAST
     Indication: Anogenital lichen planus
     Route: 048
  8. TACROLIMUS [Concomitant]
     Active Substance: TACROLIMUS
     Indication: Anogenital lichen planus
     Route: 065
  9. ACITRETIN [Concomitant]
     Active Substance: ACITRETIN
     Indication: Anogenital lichen planus
     Dosage: DOSE FORM :NOT SPECIFIED
     Route: 048
  10. CLOBETASOL PROPIONATE [Concomitant]
     Active Substance: CLOBETASOL PROPIONATE
     Indication: Anogenital lichen planus
     Dosage: DOSE FORM :NOT SPECIFIED
     Route: 065
  11. MYCOPHENOLATE MOFETIL [Concomitant]
     Active Substance: MYCOPHENOLATE MOFETIL
     Indication: Anogenital lichen planus
     Route: 065

REACTIONS (3)
  - Condition aggravated [Unknown]
  - Drug ineffective for unapproved indication [Unknown]
  - Treatment failure [Unknown]
